FAERS Safety Report 6826652-4 (Version None)
Quarter: 2010Q3

REPORT INFORMATION
  Report Type: 
  Country: None (occurrence: None)
  Receive Date: 20100709
  Receipt Date: 20100702
  Transmission Date: 20110219
  Serious: Yes (Death, Other)
  Sender: FDA-Public Use
  Company Number: US-PFIZER INC-2010083127

PATIENT
  Sex: Female
  Weight: 57 kg

DRUGS (3)
  1. VFEND [Suspect]
     Indication: LUNG INFECTION
     Dosage: 200 MG, 2X/DAY
     Route: 048
     Dates: start: 20090101
  2. SYNTHROID [Concomitant]
     Indication: THYROID DISORDER
     Dosage: UNK
     Route: 048
  3. ADVAIR DISKUS 100/50 [Concomitant]
     Dosage: UNK

REACTIONS (2)
  - CARDIAC DISORDER [None]
  - VASCULAR GRAFT [None]
